FAERS Safety Report 4274272-0 (Version None)
Quarter: 2004Q1

REPORT INFORMATION
  Report Type: 
  Country: None (occurrence: None)
  Receive Date: 20040115
  Receipt Date: 20031228
  Transmission Date: 20041129
  Serious: Yes (Other)
  Sender: FDA-Public Use
  Company Number: SUSI-2003-00542

PATIENT
  Age: 35 Year
  Sex: Female
  Weight: 80.3 kg

DRUGS (3)
  1. ADDERALL XR (AMPHETAMINE ASPARTATE, AMPHETAMINE SULFATE, DEXTROAMPHETA [Suspect]
     Dosage: 30 MG, 2X/DAY:BID
  2. SYNTHROID [Concomitant]
  3. MIRTAZAPINE [Concomitant]

REACTIONS (7)
  - ANOREXIA [None]
  - DEPRESSION [None]
  - HYPERSOMNIA [None]
  - INSOMNIA [None]
  - PERSECUTORY DELUSION [None]
  - TREATMENT NONCOMPLIANCE [None]
  - WEIGHT DECREASED [None]
